FAERS Safety Report 19577398 (Version 1)
Quarter: 2021Q3

REPORT INFORMATION
  Report Type: Report from Study
  Country: US (occurrence: US)
  Receive Date: 20210719
  Receipt Date: 20210719
  Transmission Date: 20211014
  Serious: Yes (Death, Life-Threatening, Hospitalization, Other)
  Sender: FDA-Public Use
  Company Number: US-RECRO GAINESVILLE LLC-REPH-2021-000013

PATIENT
  Age: 65 Year
  Sex: Female

DRUGS (1)
  1. VERAPAMIL HYDROCHLORIDE SUSTAINED RELEASE [Suspect]
     Active Substance: VERAPAMIL HYDROCHLORIDE
     Dosage: 10 TO 20 TABLETS
     Route: 048

REACTIONS (5)
  - Toxicity to various agents [Fatal]
  - Hypertriglyceridaemia [Recovered/Resolved]
  - Overdose [Fatal]
  - Mental status changes [Unknown]
  - Cardiogenic shock [Unknown]
